FAERS Safety Report 6602489-6 (Version None)
Quarter: 2010Q1

REPORT INFORMATION
  Report Type: 
  Country: None (occurrence: None)
  Receive Date: 20100225
  Receipt Date: 20100217
  Transmission Date: 20100710
  Serious: Yes (Hospitalization)
  Sender: FDA-Public Use
  Company Number: US-JNJFOC-20100203515

PATIENT
  Age: 16 Year
  Sex: Male
  Weight: 68.04 kg

DRUGS (3)
  1. MOTRIN IB [Suspect]
  2. MOTRIN IB [Suspect]
     Indication: PHARYNGITIS STREPTOCOCCAL
     Dosage: 200-400MG, TWICE
  3. ADVAIR DISKUS 100/50 [Concomitant]
     Indication: ASTHMA

REACTIONS (6)
  - ABDOMINAL PAIN UPPER [None]
  - DIARRHOEA [None]
  - HEADACHE [None]
  - HYPERTENSION [None]
  - PRODUCT QUALITY ISSUE [None]
  - RENAL FAILURE [None]
